FAERS Safety Report 19308952 (Version 3)
Quarter: 2022Q1

REPORT INFORMATION
  Report Type: Other
  Country: CA (occurrence: CA)
  Receive Date: 20210525
  Receipt Date: 20220224
  Transmission Date: 20220423
  Serious: Yes (Other)
  Sender: FDA-Public Use
  Company Number: CA-CELLTRION INC.-2021CA006767

PATIENT

DRUGS (10)
  1. TRASTUZUMAB [Suspect]
     Active Substance: TRASTUZUMAB
     Indication: Breast cancer
     Route: 065
  2. ACTEMRA [Suspect]
     Active Substance: TOCILIZUMAB
     Indication: Giant cell arteritis
     Dosage: 162 MILLIGRAM, 1 EVERY 1 WEEKS
     Route: 058
  3. CALCIUM [Concomitant]
     Active Substance: CALCIUM
  4. ESOMEPRAZOLE [Concomitant]
     Active Substance: ESOMEPRAZOLE
     Indication: Gastrooesophageal reflux disease
     Dosage: 20 MILLIGRAM, 2 EVERY 1 DAYS
     Route: 065
  5. PREDNISONE [Concomitant]
     Active Substance: PREDNISONE
  6. PROLIA [Concomitant]
     Active Substance: DENOSUMAB
     Dosage: UNK, 1 EVERY 6 MONTHS
     Route: 065
  7. ROSUVASTATIN [Concomitant]
     Active Substance: ROSUVASTATIN
     Route: 058
  8. SYNTHROID [Concomitant]
     Active Substance: LEVOTHYROXINE SODIUM
  9. TYLENOL [Concomitant]
     Active Substance: ACETAMINOPHEN
  10. ZOPICLONE [Concomitant]
     Active Substance: ZOPICLONE

REACTIONS (9)
  - Blood cholesterol increased [Recovered/Resolved]
  - Blood pressure systolic increased [Recovered/Resolved]
  - Diverticulum [Recovered/Resolved]
  - Giant cell arteritis [Recovered/Resolved]
  - Large intestine polyp [Recovered/Resolved]
  - Polymyalgia rheumatica [Recovered/Resolved]
  - Thyroid disorder [Recovered/Resolved]
  - Ejection fraction decreased [Recovered/Resolved]
  - Hypertension [Recovered/Resolved]
